FAERS Safety Report 9722214 (Version 1)
Quarter: 2013Q4

REPORT INFORMATION
  Report Type: Spontaneous
  Country: US (occurrence: US)
  Receive Date: 20131202
  Receipt Date: 20131202
  Transmission Date: 20140711
  Serious: Yes (Hospitalization, Other)
  Sender: FDA-Public Use
  Company Number: US-AMGEN-USASP2013083533

PATIENT
  Age: 91 Year
  Sex: Male

DRUGS (1)
  1. SENSIPAR [Suspect]
     Indication: HYPERPARATHYROIDISM PRIMARY
     Dosage: 30 MG, QD
     Route: 065

REACTIONS (2)
  - Urinary tract infection [Unknown]
  - Gastrointestinal tube insertion [Unknown]
